FAERS Safety Report 19135746 (Version 1)
Quarter: 2021Q2

REPORT INFORMATION
  Report Type: Spontaneous
  Country: US (occurrence: US)
  Receive Date: 20210414
  Receipt Date: 20210414
  Transmission Date: 20210717
  Serious: No
  Sender: FDA-Public Use
  Company Number: US-KVK-TECH, INC-20210100006

PATIENT
  Age: 46 Year
  Sex: Male
  Weight: 96.15 kg

DRUGS (4)
  1. PHENTERMINE HYDROCHLORIDE CAPSULES, USP [Suspect]
     Active Substance: PHENTERMINE HYDROCHLORIDE
     Indication: WEIGHT DECREASED
     Dosage: 15 MILLIGRAM, 1 CAPSULE PER DAY
     Route: 048
     Dates: start: 20210113, end: 20210113
  2. VITAMIN D3 [Concomitant]
     Active Substance: CHOLECALCIFEROL
  3. VITAMIN D [COLECALCIFEROL] [Concomitant]
     Active Substance: CHOLECALCIFEROL
  4. PHENTERMINE HYDROCHLORIDE CAPSULES, USP [Suspect]
     Active Substance: PHENTERMINE HYDROCHLORIDE
     Indication: DECREASED APPETITE

REACTIONS (3)
  - Gait disturbance [Recovered/Resolved]
  - Headache [Recovered/Resolved]
  - Hypersensitivity [Recovered/Resolved]

NARRATIVE: CASE EVENT DATE: 20210113
